FAERS Safety Report 25742329 (Version 1)
Quarter: 2025Q3

REPORT INFORMATION
  Report Type: Spontaneous
  Country: US (occurrence: US)
  Receive Date: 20250829
  Receipt Date: 20250829
  Transmission Date: 20251021
  Serious: No
  Sender: BRISTOL-MYERS SQUIBB COMPANY
  Company Number: US-BRISTOL-MYERS SQUIBB COMPANY-2025-120062

PATIENT
  Sex: Male

DRUGS (1)
  1. OPDIVO QVANTIG [Suspect]
     Active Substance: HYALURONIDASE-NVHY\NIVOLUMAB
     Indication: Metastatic malignant melanoma

REACTIONS (2)
  - Malaise [Recovering/Resolving]
  - Nausea [Recovering/Resolving]
